FAERS Safety Report 11582125 (Version 1)
Quarter: 2015Q4

REPORT INFORMATION
  Report Type: Spontaneous
  Country: US (occurrence: US)
  Receive Date: 20151001
  Receipt Date: 20151001
  Transmission Date: 20160304
  Serious: No
  Sender: FDA-Public Use
  Company Number: US-ROCHE-653229

PATIENT
  Age: 55 Year
  Sex: Male

DRUGS (2)
  1. RIBAVIRIN. [Suspect]
     Active Substance: RIBAVIRIN
     Indication: HEPATITIS C
     Dosage: IN DIVIDED DOSES,
     Route: 048
  2. PEGASYS [Suspect]
     Active Substance: PEGINTERFERON ALFA-2A
     Indication: HEPATITIS C
     Dosage: FORM: PRE-FILLED SYRINGE;
     Route: 058

REACTIONS (16)
  - Vomiting [Unknown]
  - Pain [Not Recovered/Not Resolved]
  - Rash [Not Recovered/Not Resolved]
  - Abdominal mass [Not Recovered/Not Resolved]
  - Glycosylated haemoglobin increased [Unknown]
  - Influenza like illness [Not Recovered/Not Resolved]
  - Urinary tract infection [Recovering/Resolving]
  - Rash papular [Not Recovered/Not Resolved]
  - Insomnia [Recovering/Resolving]
  - Eczema [Not Recovered/Not Resolved]
  - Abdominal distension [Unknown]
  - Nausea [Unknown]
  - Hyperhidrosis [Not Recovered/Not Resolved]
  - Fatigue [Not Recovered/Not Resolved]
  - Depression [Not Recovered/Not Resolved]
  - Tinea cruris [Not Recovered/Not Resolved]

NARRATIVE: CASE EVENT DATE: 20090720
